FAERS Safety Report 13983248 (Version 1)
Quarter: 2017Q3

REPORT INFORMATION
  Report Type: Report from Study
  Country: US (occurrence: US)
  Receive Date: 20170918
  Receipt Date: 20170918
  Transmission Date: 20171128
  Serious: Yes (Death)
  Sender: FDA-Public Use
  Company Number: US-ASTELLAS-2017US037305

PATIENT

DRUGS (6)
  1. PACLITAXEL. [Suspect]
     Active Substance: PACLITAXEL
     Indication: SQUAMOUS CELL CARCINOMA OF HEAD AND NECK
     Route: 042
  2. ERLOTINIB [Suspect]
     Active Substance: ERLOTINIB
     Indication: SQUAMOUS CELL CARCINOMA OF HEAD AND NECK
     Dosage: 150 MG, ONCE DAILY FOR 2 DAYS
     Route: 048
  3. CARBOPLATIN. [Suspect]
     Active Substance: CARBOPLATIN
     Indication: SQUAMOUS CELL CARCINOMA OF HEAD AND NECK
     Dosage: UNK UNK, ONCE WEEKLY (AUC2)
     Route: 042
  4. ERLOTINIB [Suspect]
     Active Substance: ERLOTINIB
     Route: 048
  5. CETUXIMAB. [Suspect]
     Active Substance: CETUXIMAB
     Indication: SQUAMOUS CELL CARCINOMA OF HEAD AND NECK
     Dosage: 400 MG/M2, UNKNOWN FREQ. (LOADING DOSE)
     Route: 042
  6. CETUXIMAB. [Suspect]
     Active Substance: CETUXIMAB
     Route: 042

REACTIONS (1)
  - Arterial haemorrhage [Fatal]
